FAERS Safety Report 15178542 (Version 1)
Quarter: 2018Q3

REPORT INFORMATION
  Report Type: Spontaneous
  Country: US (occurrence: US)
  Receive Date: 20180722
  Receipt Date: 20180722
  Transmission Date: 20181010
  Serious: No
  Sender: FDA-Public Use
  Company Number: US-009507513-1606USA008052

PATIENT
  Age: 28 Year
  Sex: Female

DRUGS (4)
  1. LOPINAVIR (+) RITONAVIR [Suspect]
     Active Substance: LOPINAVIR\RITONAVIR
     Dosage: COURSE NUMBER:2, TOTAL DAILY DOSE 1500
     Route: 048
  2. ISENTRESS [Suspect]
     Active Substance: RALTEGRAVIR POTASSIUM
     Dosage: COURSE NUMBER:1, TOTAL DAILY DOSE 800
     Route: 048
  3. LAMIVUDINE AND ZIDOVUDINE [Suspect]
     Active Substance: LAMIVUDINE\ZIDOVUDINE
     Dosage: COURSE NUMBER:1, TOTAL DAILY DOSE 900
     Route: 048
  4. LOPINAVIR (+) RITONAVIR [Suspect]
     Active Substance: LOPINAVIR\RITONAVIR
     Dosage: COURSE NUMBER:1, TOTAL DAILY DOSE 1000
     Route: 048

REACTIONS (2)
  - No adverse event [Unknown]
  - Maternal exposure during pregnancy [Recovered/Resolved]
